FAERS Safety Report 18437402 (Version 1)
Quarter: 2020Q4

REPORT INFORMATION
  Report Type: Spontaneous
  Country: PT (occurrence: PT)
  Receive Date: 20201028
  Receipt Date: 20201028
  Transmission Date: 20210114
  Serious: Yes (Hospitalization)
  Sender: FDA-Public Use
  Company Number: NVSC2020PT287065

PATIENT
  Age: 47 Year
  Sex: Male

DRUGS (1)
  1. PARACETAMOL [Suspect]
     Active Substance: ACETAMINOPHEN
     Indication: INFLUENZA LIKE ILLNESS
     Dosage: 3000-4500 MG/DAY
     Route: 065

REACTIONS (8)
  - Multiple organ dysfunction syndrome [Unknown]
  - Jaundice [Unknown]
  - Pulmonary embolism [Unknown]
  - Liver injury [Unknown]
  - Asthenia [Unknown]
  - Oedema peripheral [Unknown]
  - Condition aggravated [Unknown]
  - Pyrexia [Unknown]
